FAERS Safety Report 10060948 (Version 2)
Quarter: 2014Q2

REPORT INFORMATION
  Report Type: Report from Study
  Country: AR (occurrence: AR)
  Receive Date: 20140404
  Receipt Date: 20140409
  Transmission Date: 20141212
  Serious: Yes (Death, Hospitalization, Other)
  Sender: FDA-Public Use
  Company Number: PHHY2014AR041177

PATIENT
  Sex: Female

DRUGS (2)
  1. EXELON [Suspect]
     Indication: DEMENTIA
     Dosage: 4.5 MG, ONE OR TWO TIMES DAILY
     Route: 048
     Dates: start: 2007
  2. EXELON PATCH [Suspect]
     Dosage: UNK UKN, UNK
     Route: 062

REACTIONS (8)
  - Hepatic cirrhosis [Fatal]
  - Hip fracture [Unknown]
  - Fracture [Unknown]
  - Liver disorder [Unknown]
  - Fall [Unknown]
  - Mental disorder [Unknown]
  - Hypophagia [Unknown]
  - Dehydration [Unknown]
